FAERS Safety Report 8567283-8 (Version None)
Quarter: 2012Q3

REPORT INFORMATION
  Report Type: 
  Country: None (occurrence: None)
  Receive Date: 20120730
  Receipt Date: 20120730
  Transmission Date: 20120928
  Serious: Yes (Other)
  Sender: FDA-Public Use
  Company Number: None

PATIENT
  Age: 34 Year
  Sex: Male
  Weight: 89.8122 kg

DRUGS (1)
  1. PROAIR HFA [Suspect]

REACTIONS (4)
  - PRODUCT QUALITY ISSUE [None]
  - DRUG EFFECT DECREASED [None]
  - RESPIRATORY TRACT IRRITATION [None]
  - CHEST DISCOMFORT [None]
